FAERS Safety Report 10065002 (Version 1)
Quarter: 2014Q2

REPORT INFORMATION
  Report Type: Report from Study
  Country: GB (occurrence: AU)
  Receive Date: 20140408
  Receipt Date: 20140408
  Transmission Date: 20141212
  Serious: Yes (Hospitalization)
  Sender: FDA-Public Use
  Company Number: PHHY2014AU040320

PATIENT
  Age: 63 Year
  Sex: Male

DRUGS (26)
  1. EVEROLIMUS [Suspect]
     Indication: METASTATIC RENAL CELL CARCINOMA
     Dosage: UNK
     Dates: start: 20130823
  2. DEXAMETHASONE [Suspect]
     Dosage: UNK
     Route: 048
     Dates: start: 20130809, end: 20130823
  3. PAZOPANIB [Suspect]
     Indication: METASTATIC RENAL CELL CARCINOMA
     Dosage: 800 MG, QD
     Route: 048
     Dates: start: 20120503, end: 20130114
  4. PAZOPANIB [Suspect]
     Dosage: 600 MG, QD
     Route: 048
     Dates: start: 20130121, end: 20130530
  5. QUINAPRIL AND HYDROCHLOROTHIAZIDE [Concomitant]
     Dosage: UNK
     Dates: start: 20070101
  6. PROCHLORPERAZINE [Concomitant]
     Dosage: UNK
     Dates: start: 20120509
  7. METOCLOPRAMIDE [Concomitant]
     Dosage: UNK
     Dates: start: 20120509
  8. MEGESTROL ACETATE [Concomitant]
     Dosage: UNK
     Dates: start: 20120517
  9. AMLODIPINE W/ATORVASTATIN [Concomitant]
     Dosage: UNK
     Dates: start: 20090101
  10. PARACETAMOL [Concomitant]
  11. GEMFIBROZIL [Concomitant]
     Dosage: UNK
     Dates: start: 20130904
  12. AMINO ACID [Concomitant]
     Dosage: UNK
     Dates: start: 20120517
  13. COLOXYL [Concomitant]
     Dosage: UNK
     Dates: start: 20130809, end: 20130822
  14. CLEXANE [Concomitant]
     Dosage: UNK
     Dates: start: 20130821, end: 20130822
  15. NYSTATIN [Concomitant]
     Dosage: UNK
     Dates: start: 20130628
  16. NYSTATIN [Concomitant]
     Dosage: UNK
     Dates: start: 20130810, end: 20130823
  17. PANTOPRAZOL [Concomitant]
     Dosage: UNK
     Dates: start: 20120619
  18. PANTOPRAZOL [Concomitant]
     Dosage: UNK
     Dates: start: 20130810, end: 20130823
  19. CADUET [Concomitant]
     Dosage: UNK
     Dates: start: 201007
  20. ACURETIC [Concomitant]
     Dosage: UNK
     Dates: start: 20120509
  21. MOVICOL [Concomitant]
     Dosage: UNK
     Dates: start: 20120517
  22. THYROXINE SODIUM [Concomitant]
     Dosage: UNK
     Dates: start: 20120629
  23. CEPHALEXIN [Concomitant]
     Dosage: UNK
     Dates: start: 20120619, end: 20120628
  24. LOPERAMIDE HCL [Concomitant]
     Dosage: UNK
     Dates: start: 20120823
  25. METHYLPREDISOLONE [Concomitant]
     Dosage: UNK
     Dates: start: 20130307
  26. SENNA [Suspect]
     Dosage: UNK
     Dates: start: 20130809, end: 20130822

REACTIONS (6)
  - Delirium [Unknown]
  - Confusional state [Not Recovered/Not Resolved]
  - Urinary incontinence [Not Recovered/Not Resolved]
  - Faecal incontinence [Not Recovered/Not Resolved]
  - General physical health deterioration [Not Recovered/Not Resolved]
  - Asthenia [Not Recovered/Not Resolved]
